FAERS Safety Report 22393534 (Version 1)
Quarter: 2023Q2

REPORT INFORMATION
  Report Type: Spontaneous
  Country: US (occurrence: US)
  Receive Date: 20230601
  Receipt Date: 20230601
  Transmission Date: 20230722
  Serious: No
  Sender: FDA-Public Use
  Company Number: US-EXELA PHARMA SCIENCES, LLC-2023EXL00001

PATIENT
  Sex: Female

DRUGS (1)
  1. EPHEDRINE [Suspect]
     Active Substance: EPHEDRINE

REACTIONS (1)
  - Drug hypersensitivity [Unknown]
